FAERS Safety Report 4421383-2 (Version None)
Quarter: 2004Q3

REPORT INFORMATION
  Report Type: 
  Country: None (occurrence: None)
  Receive Date: 20040719
  Receipt Date: 20040510
  Transmission Date: 20050211
  Serious: No
  Sender: FDA-Public Use
  Company Number: 2004212777US

PATIENT
  Age: 74 Year
  Sex: Female

DRUGS (1)
  1. INSPRA [Suspect]

REACTIONS (4)
  - ABDOMINAL PAIN UPPER [None]
  - HEADACHE [None]
  - MALAISE [None]
  - NERVOUSNESS [None]
